FAERS Safety Report 4563841-6 (Version None)
Quarter: 2005Q1

REPORT INFORMATION
  Report Type: 
  Country: None (occurrence: None)
  Receive Date: 20050112
  Receipt Date: 20050112
  Transmission Date: 20050727
  Serious: Yes (Other)
  Sender: FDA-Public Use
  Company Number: None

PATIENT
  Sex: Female
  Weight: 63.5036 kg

DRUGS (1)
  1. TYLENOL W/ CODEINE [Suspect]
     Indication: CERVICAL SPINAL STENOSIS
     Dosage: ONE PO Q 8 H
     Route: 048
     Dates: start: 20000127, end: 20040927

REACTIONS (1)
  - THERAPY NON-RESPONDER [None]
